FAERS Safety Report 25906645 (Version 2)
Quarter: 2025Q4

REPORT INFORMATION
  Report Type: Report from Study
  Country: JP (occurrence: JP)
  Receive Date: 20251010
  Receipt Date: 20251029
  Transmission Date: 20260117
  Serious: Yes (Other)
  Sender: GILEAD
  Company Number: JP-GILEAD-2025-0731829

PATIENT
  Age: 6 Decade
  Sex: Male

DRUGS (1)
  1. EMTRICITABINE\TENOFOVIR [Suspect]
     Active Substance: EMTRICITABINE\TENOFOVIR
     Indication: Prophylaxis against HIV infection
     Dosage: UNK
     Route: 048

REACTIONS (9)
  - HIV infection [Unknown]
  - Pyrexia [Unknown]
  - Platelet count decreased [Unknown]
  - Atypical lymphocytes increased [Unknown]
  - Hepatic function abnormal [Unknown]
  - HIV antibody positive [Unknown]
  - Cytomegalovirus test positive [Unknown]
  - Rash [Unknown]
  - Product use in unapproved indication [Unknown]
